FAERS Safety Report 5840655-8 (Version None)
Quarter: 2008Q3

REPORT INFORMATION
  Report Type: 
  Country: None (occurrence: None)
  Receive Date: 20080811
  Receipt Date: 20080729
  Transmission Date: 20090109
  Serious: Yes (Hospitalization)
  Sender: FDA-Public Use
  Company Number: PHBS2007IT17824

PATIENT
  Sex: Male

DRUGS (5)
  1. ZOMETA [Suspect]
     Indication: METASTASES TO BONE
     Dosage: 4 MG/MONTH
     Route: 048
     Dates: start: 20040915, end: 20071023
  2. GLIBOMET [Concomitant]
     Indication: DIABETES MELLITUS
     Dosage: 800 MG/DAY
     Route: 048
     Dates: start: 20040915, end: 20071023
  3. CALCIUM SANDOZ [Concomitant]
     Indication: HYPOCALCAEMIA
     Dosage: 500 MG/DAY
     Route: 048
     Dates: start: 20070915, end: 20071023
  4. ASPIRIN [Concomitant]
     Indication: ANTICOAGULANT THERAPY
     Dosage: 100 MG/DAY
     Route: 048
     Dates: start: 20020101, end: 20071023
  5. SUTENT [Concomitant]
     Indication: RENAL CANCER
     Dosage: 50 MG/DAY
     Route: 048
     Dates: start: 20070101, end: 20071023

REACTIONS (1)
  - OSTEONECROSIS [None]
